FAERS Safety Report 20982916 (Version 1)
Quarter: 2022Q2

REPORT INFORMATION
  Report Type: Spontaneous
  Country: US (occurrence: US)
  Receive Date: 20220620
  Receipt Date: 20220620
  Transmission Date: 20220721
  Serious: Yes (Hospitalization)
  Sender: FDA-Public Use
  Company Number: US-KARYOPHARM-2022KPT000659

PATIENT

DRUGS (14)
  1. XPOVIO [Suspect]
     Active Substance: SELINEXOR
     Indication: Plasma cell myeloma
     Dosage: 80 MG, WEEKLY
     Route: 048
     Dates: start: 20220527
  2. DEXAMETHASONE [Concomitant]
     Active Substance: DEXAMETHASONE
  3. FOLIC ACID [Concomitant]
     Active Substance: FOLIC ACID
  4. GABAPENTIN [Concomitant]
     Active Substance: GABAPENTIN
  5. HYDROXYZINE [Concomitant]
     Active Substance: HYDROXYZINE HYDROCHLORIDE
  6. LACTULOSE [Concomitant]
     Active Substance: LACTULOSE
  7. METOPROLOL [Concomitant]
     Active Substance: METOPROLOL
  8. ONDANSETRON [Concomitant]
     Active Substance: ONDANSETRON
  9. OXYCODONE [Concomitant]
     Active Substance: OXYCODONE
  10. PANTOPRAZOLE [Concomitant]
     Active Substance: PANTOPRAZOLE
  11. VALACYCLOVIR HYDROCHLORIDE [Concomitant]
     Active Substance: VALACYCLOVIR HYDROCHLORIDE
  12. ZOLEDRONIC ACID [Concomitant]
     Active Substance: ZOLEDRONIC ACID
  13. PROCHLORPERAZINE [Concomitant]
     Active Substance: PROCHLORPERAZINE
  14. NALOXONE [Concomitant]
     Active Substance: NALOXONE
     Dosage: UNK, PRN

REACTIONS (1)
  - Asthenia [Unknown]

NARRATIVE: CASE EVENT DATE: 20220530
